FAERS Safety Report 8462314-8 (Version None)
Quarter: 2012Q2

REPORT INFORMATION
  Report Type: 
  Country: None (occurrence: None)
  Receive Date: 20120625
  Receipt Date: 20120614
  Transmission Date: 20120825
  Serious: Yes (Hospitalization)
  Sender: FDA-Public Use
  Company Number: JP-ASTRAZENECA-2012SE38831

PATIENT
  Age: 53 Year
  Sex: Female
  Weight: 54 kg

DRUGS (12)
  1. NEXIUM [Suspect]
     Indication: GASTRIC ULCER
     Route: 048
     Dates: start: 20120213, end: 20120501
  2. LEVOTHYROXINE SODIUM [Suspect]
     Indication: HYPOTHYROIDISM
     Route: 048
     Dates: start: 20110823
  3. POLYFUL [Suspect]
     Indication: SHORT-BOWEL SYNDROME
     Route: 048
     Dates: start: 20110823
  4. ELENTAL [Suspect]
     Indication: CROHN'S DISEASE
     Route: 048
     Dates: start: 20110823
  5. PENTASA [Suspect]
     Indication: CROHN'S DISEASE
     Route: 048
     Dates: start: 20110823
  6. WARFARIN SODIUM [Suspect]
     Indication: ANTIPHOSPHOLIPID SYNDROME
     Route: 048
     Dates: start: 20110823
  7. ADSORBIN [Suspect]
     Indication: SHORT-BOWEL SYNDROME
     Route: 048
     Dates: start: 20110823
  8. ALBUMIN TANNATE [Suspect]
     Indication: SHORT-BOWEL SYNDROME
     Route: 048
     Dates: start: 20110823
  9. BERIZYM [Suspect]
     Indication: SHORT-BOWEL SYNDROME
     Route: 048
     Dates: start: 20110823
  10. LOPERAMIDE HYDROCHLORIDE [Suspect]
     Indication: SHORT-BOWEL SYNDROME
     Route: 048
     Dates: start: 20110823
  11. LAC-B [Suspect]
     Indication: SHORT-BOWEL SYNDROME
     Route: 048
     Dates: start: 20110823
  12. LAC-B [Suspect]
     Route: 048
     Dates: start: 20110823

REACTIONS (2)
  - HYPOCALCAEMIA [None]
  - HYPOMAGNESAEMIA [None]
